FAERS Safety Report 10541125 (Version 1)
Quarter: 2014Q4

REPORT INFORMATION
  Report Type: Spontaneous
  Country: US (occurrence: None)
  Receive Date: 20141010
  Receipt Date: 20141010
  Transmission Date: 20150529
  Serious: Yes (Other)
  Sender: FDA-Public Use
  Company Number: 163-POMAL-14062509

PATIENT
  Age: 62 Year
  Sex: Female
  Weight: 63.5 kg

DRUGS (15)
  1. GABAPENTIN (GABAPENTIN) [Concomitant]
     Active Substance: GABAPENTIN
  2. VITAMIN D (ERGOCALCIFEROL) [Concomitant]
     Active Substance: ERGOCALCIFEROL
  3. LEVOTHYROXINE (LEVOTHYROXINE) [Concomitant]
     Active Substance: LEVOTHYROXINE
  4. LISINOPRIL (LISINOPRIL) [Concomitant]
     Active Substance: LISINOPRIL
  5. PENICILLIN V (PHENOXYMETHYLPENICILLIN POTASSIUM) [Concomitant]
  6. OXYCODONE (OXYCODONE) [Concomitant]
     Active Substance: OXYCODONE
  7. POMALYST [Suspect]
     Active Substance: POMALIDOMIDE
     Indication: PLASMA CELL MYELOMA
     Dates: start: 20140506
  8. DEXAMETHASONE (DEXAMETHASONE) [Concomitant]
     Active Substance: DEXAMETHASONE
  9. ALPRAZOLAM (ALPRAZOLAM) [Concomitant]
     Active Substance: ALPRAZOLAM
  10. CEFUROXIME (CEFUROXIME) [Concomitant]
     Active Substance: CEFUROXIME
  11. CRANBERRY (VACCINIUIM OXYCOCCUS FRUIT EXTRACT) [Concomitant]
  12. ATORVASTATIN CALCIUM (ATORVASTATIN CALCIUM) [Concomitant]
     Active Substance: ATORVASTATIN CALCIUM
  13. CLONAZEPAM (CLONAZEPAM) [Concomitant]
  14. ASPIRIN (ACETYLSALICYLIC ACID) [Concomitant]
     Active Substance: ASPIRIN
  15. ZOMETA [Concomitant]
     Active Substance: ZOLEDRONIC ACID

REACTIONS (8)
  - Nausea [None]
  - Tooth abscess [None]
  - Pain in extremity [None]
  - Urinary tract infection [None]
  - Diarrhoea [None]
  - Nasal congestion [None]
  - Weight decreased [None]
  - Weight increased [None]

NARRATIVE: CASE EVENT DATE: 201406
